FAERS Safety Report 8926617 (Version 2)
Quarter: 2012Q4

REPORT INFORMATION
  Report Type: 
  Country: PE (occurrence: PE)
  Receive Date: 20121127
  Receipt Date: 20121220
  Transmission Date: 20130627
  Serious: Yes (Death, Other)
  Sender: FDA-Public Use
  Company Number: PHHY2012PE108290

PATIENT
  Age: 48 Year
  Sex: Female

DRUGS (3)
  1. THIAMAZOLE [Suspect]
     Indication: BASEDOW^S DISEASE
     Dosage: 5 mg, UNK
  2. FUROSEMIDE [Concomitant]
     Dosage: 20 mg, BID
     Route: 048
  3. PROPRANOL [Concomitant]

REACTIONS (14)
  - Multi-organ failure [Fatal]
  - Hyperkalaemia [Fatal]
  - Bronchopulmonary aspergillosis [Unknown]
  - Febrile neutropenia [Unknown]
  - Pyrexia [Unknown]
  - Haemoptysis [Unknown]
  - Dysphagia [Unknown]
  - Oropharyngeal pain [Unknown]
  - Pulmonary congestion [Unknown]
  - Dyspnoea [Unknown]
  - Cough [Unknown]
  - Cardiomegaly [Unknown]
  - Oedema peripheral [Unknown]
  - Oral candidiasis [Unknown]
